FAERS Safety Report 23740812 (Version 4)
Quarter: 2024Q2

REPORT INFORMATION
  Report Type: Spontaneous
  Country: US (occurrence: US)
  Receive Date: 20240415
  Receipt Date: 20240607
  Transmission Date: 20240716
  Serious: Yes (Other)
  Sender: FDA-Public Use
  Company Number: US-ORGANON-O2404USA001482

PATIENT
  Age: 18 Year
  Sex: Female
  Weight: 84.807 kg

DRUGS (1)
  1. NEXPLANON [Suspect]
     Active Substance: ETONOGESTREL
     Indication: Contraception
     Dosage: 68 MILLIGRAMS, 1 IMPLANT IN RIGHT ARM,FOR 3 YEARS
     Route: 059
     Dates: start: 20230911, end: 20240425

REACTIONS (3)
  - Syncope [Recovered/Resolved]
  - Device breakage [Recovered/Resolved]
  - Device placement issue [Recovered/Resolved]

NARRATIVE: CASE EVENT DATE: 20230911
